FAERS Safety Report 7205016-8 (Version None)
Quarter: 2010Q4

REPORT INFORMATION
  Report Type: 
  Country: None (occurrence: None)
  Receive Date: 20101230
  Receipt Date: 20101222
  Transmission Date: 20110411
  Serious: Yes (Death)
  Sender: FDA-Public Use
  Company Number: US-AMGEN-KDL439037

PATIENT

DRUGS (2)
  1. SENSIPAR [Suspect]
     Indication: HYPERPARATHYROIDISM SECONDARY
     Dosage: 25 MG, QD
     Dates: start: 20060101, end: 20100701
  2. SENSIPAR [Suspect]
     Indication: RENAL FAILURE CHRONIC
     Dates: start: 20060101, end: 20100701

REACTIONS (3)
  - CONVULSION [None]
  - DEMENTIA [None]
  - RENAL FAILURE CHRONIC [None]
